FAERS Safety Report 8108392-7 (Version None)
Quarter: 2012Q1

REPORT INFORMATION
  Report Type: 
  Country: None (occurrence: None)
  Receive Date: 20120202
  Receipt Date: 20120123
  Transmission Date: 20120608
  Serious: Yes (Other)
  Sender: FDA-Public Use
  Company Number: PHHY2006BR03935

PATIENT
  Sex: Female
  Weight: 105 kg

DRUGS (4)
  1. WARFARIN SODIUM [Concomitant]
     Indication: THROMBOSIS
     Dosage: 5 MG, A DAY
     Route: 048
     Dates: start: 20111102
  2. DAFLON (DIOSMIN) [Concomitant]
     Dosage: 500 MG, A DAY
     Route: 048
     Dates: start: 20111102
  3. EXFORGE [Suspect]
     Indication: HYPERTENSION
     Dosage: 1 DF (80/5 MG), A DAY
     Route: 048
     Dates: end: 20111230
  4. CAPTOPRIL [Suspect]

REACTIONS (2)
  - THROMBOSIS [None]
  - HYPERTENSION [None]
